FAERS Safety Report 6711545-3 (Version None)
Quarter: 2010Q2

REPORT INFORMATION
  Report Type: 
  Country: None (occurrence: None)
  Receive Date: 20100505
  Receipt Date: 20100422
  Transmission Date: 20101027
  Serious: Yes (Hospitalization, Other)
  Sender: FDA-Public Use
  Company Number: PHHY2010BR25853

PATIENT
  Age: 70 Year
  Sex: Female
  Weight: 63 kg

DRUGS (4)
  1. EXFORGE [Suspect]
     Indication: HYPERTENSION
     Dosage: 160/5 MG, 1 DF DAILY
     Route: 048
  2. EXFORGE [Suspect]
     Dosage: 160/10 MG, 1DF DAILY
     Route: 048
     Dates: end: 20100421
  3. VASTAREL [Concomitant]
     Indication: CARDIAC DISORDER
     Dosage: 35 MG
  4. NORVASC [Concomitant]
     Indication: CARDIAC DISORDER
     Dosage: 1 TABLET DAILY

REACTIONS (2)
  - ANGIOPLASTY [None]
  - HYPERTENSION [None]
